FAERS Safety Report 4515105-4 (Version None)
Quarter: 2004Q4

REPORT INFORMATION
  Report Type: 
  Country: None (occurrence: None)
  Receive Date: 20041201
  Receipt Date: 20041119
  Transmission Date: 20050328
  Serious: Yes (Death, Disabling)
  Sender: FDA-Public Use
  Company Number: FR-JNJFOC-20040607404

PATIENT
  Age: 70 Year
  Sex: Male
  Weight: 66 kg

DRUGS (13)
  1. RISPERDAL [Suspect]
     Route: 049
  2. BACTRIM [Suspect]
     Route: 049
  3. BACTRIM [Suspect]
     Indication: DRUG USE FOR UNKNOWN INDICATION
     Route: 049
  4. MEPRONIZINE [Suspect]
     Route: 049
  5. MEPRONIZINE [Suspect]
     Indication: DRUG USE FOR UNKNOWN INDICATION
     Route: 049
  6. CORDARONE [Suspect]
     Indication: DRUG USE FOR UNKNOWN INDICATION
     Route: 049
  7. THALIDOMIDE [Suspect]
     Route: 049
  8. THALIDOMIDE [Suspect]
     Route: 049
  9. TRIATEC [Concomitant]
  10. SPORANOX [Concomitant]
  11. FLECAINE [Concomitant]
  12. PROZAC [Concomitant]
  13. SKENAN [Concomitant]

REACTIONS (11)
  - BRACHIAL PLEXUS LESION [None]
  - CONVULSION [None]
  - DRUG INTERACTION [None]
  - HAEMODYNAMIC INSTABILITY [None]
  - LIGHT CHAIN ANALYSIS INCREASED [None]
  - MULTIPLE MYELOMA [None]
  - MYELOMA RECURRENCE [None]
  - NERVE ROOT LESION [None]
  - PERIPHERAL SENSORIMOTOR NEUROPATHY [None]
  - PULMONARY CONGESTION [None]
  - PYREXIA [None]
